FAERS Safety Report 18221696 (Version 1)
Quarter: 2020Q3

REPORT INFORMATION
  Report Type: Spontaneous
  Country: US (occurrence: US)
  Receive Date: 20200902
  Receipt Date: 20200902
  Transmission Date: 20201103
  Serious: No
  Sender: FDA-Public Use
  Company Number: US-DECIPHERA PHARMACEUTICALS LLC-2020-US-000306

PATIENT
  Sex: Female

DRUGS (3)
  1. LISINOPRIL. [Concomitant]
     Active Substance: LISINOPRIL
     Dosage: 20 MILLIGRAM IN AM
  2. HYDROCHLOROTHIAZIDE;LABETALOL [Concomitant]
     Dosage: 200 MILLIGRAM IN AM AND PM
  3. QINLOCK [Suspect]
     Active Substance: RIPRETINIB
     Indication: GASTROINTESTINAL STROMAL TUMOUR
     Dosage: 150 MILLIGRAM, QD
     Route: 048
     Dates: start: 20200707

REACTIONS (5)
  - Palpitations [Unknown]
  - Confusional state [Unknown]
  - Candida infection [Unknown]
  - Abdominal pain [Unknown]
  - Alopecia [Unknown]
